FAERS Safety Report 11458303 (Version 1)
Quarter: 2015Q3

REPORT INFORMATION
  Report Type: Spontaneous
  Country: US (occurrence: US)
  Receive Date: 20150904
  Receipt Date: 20150904
  Transmission Date: 20151125
  Serious: No
  Sender: FDA-Public Use
  Company Number: US-B.I. PHARMACEUTICALS,INC./RIDGEFIELD-2015-BI-46368BP

PATIENT
  Sex: Female

DRUGS (2)
  1. GILOTRIF [Suspect]
     Active Substance: AFATINIB
     Dosage: 20 MG
     Route: 048
  2. GILOTRIF [Suspect]
     Active Substance: AFATINIB
     Indication: PRODUCT USED FOR UNKNOWN INDICATION
     Dosage: 30 MG
     Route: 048
     Dates: start: 20150730

REACTIONS (1)
  - Diarrhoea [Recovered/Resolved]

NARRATIVE: CASE EVENT DATE: 2015
